FAERS Safety Report 5018048-5 (Version None)
Quarter: 2006Q2

REPORT INFORMATION
  Report Type: 
  Country: None (occurrence: None)
  Receive Date: 20060605
  Receipt Date: 20060525
  Transmission Date: 20061013
  Serious: Yes (Hospitalization)
  Sender: FDA-Public Use
  Company Number: HR-BRISTOL-MYERS SQUIBB COMPANY-13390091

PATIENT
  Age: 76 Year
  Sex: Male

DRUGS (5)
  1. CISPLATIN [Suspect]
     Route: 042
     Dates: start: 20060424, end: 20060424
  2. TS-1 [Suspect]
     Route: 048
     Dates: start: 20060424, end: 20060514
  3. PEPTORAN [Concomitant]
     Indication: ABDOMINAL PAIN UPPER
     Dates: start: 20060404
  4. TRAMADOL HCL [Concomitant]
     Indication: PAIN
     Dates: start: 20060416
  5. LACTULOSE [Concomitant]
     Indication: CONSTIPATION
     Route: 048
     Dates: start: 20060413

REACTIONS (2)
  - FATIGUE [None]
  - GENERAL PHYSICAL HEALTH DETERIORATION [None]
